FAERS Safety Report 18148644 (Version 1)
Quarter: 2020Q3

REPORT INFORMATION
  Report Type: Spontaneous
  Country: PL (occurrence: PL)
  Receive Date: 20200814
  Receipt Date: 20200814
  Transmission Date: 20201103
  Serious: Yes (Death, Other)
  Sender: FDA-Public Use
  Company Number: PL-ROCHE-2658071

PATIENT
  Age: 54 Year
  Sex: Male

DRUGS (1)
  1. ATEZOLIZUMAB. [Suspect]
     Active Substance: ATEZOLIZUMAB
     Indication: LUNG ADENOCARCINOMA
     Route: 040
     Dates: start: 201912

REACTIONS (3)
  - Death [Fatal]
  - Immune-mediated pneumonitis [Recovered/Resolved]
  - Pyrexia [Unknown]
